FAERS Safety Report 4623955-9 (Version None)
Quarter: 2005Q1

REPORT INFORMATION
  Report Type: 
  Country: None (occurrence: None)
  Receive Date: 20050331
  Receipt Date: 20050321
  Transmission Date: 20050727
  Serious: Yes (Other)
  Sender: FDA-Public Use
  Company Number: US-ROCHE-399550

PATIENT
  Sex: Male

DRUGS (2)
  1. PEGASYS [Suspect]
     Indication: DRUG USE FOR UNKNOWN INDICATION
     Dosage: ROUTE OF ADMINISTRATION REPORTED AS INJECTION.
     Route: 050
     Dates: end: 20040916
  2. COPEGUS [Suspect]
     Indication: DRUG USE FOR UNKNOWN INDICATION
     Route: 048
     Dates: end: 20040916

REACTIONS (5)
  - DRUG INEFFECTIVE [None]
  - HIP ARTHROPLASTY [None]
  - RHEUMATOID ARTHRITIS [None]
  - VIRAL LOAD INCREASED [None]
  - WHITE BLOOD CELL COUNT DECREASED [None]
